FAERS Safety Report 6267927-X (Version None)
Quarter: 2009Q3

REPORT INFORMATION
  Report Type: 
  Country: None (occurrence: None)
  Receive Date: 20090713
  Receipt Date: 20090630
  Transmission Date: 20100115
  Serious: Yes (Death, Other)
  Sender: FDA-Public Use
  Company Number: 2009AL003657

PATIENT
  Age: 28 Year
  Sex: Male

DRUGS (5)
  1. OXAZEPAM [Suspect]
  2. DIAZEPAM [Suspect]
  3. ALPRAZOLAM [Suspect]
  4. METHADONE HCL [Concomitant]
  5. NORDAZEPAM [Concomitant]

REACTIONS (5)
  - CARDIOMEGALY [None]
  - DRUG TOXICITY [None]
  - OVERDOSE [None]
  - PNEUMOCONIOSIS [None]
  - PULMONARY CONGESTION [None]
